FAERS Safety Report 25414719 (Version 2)
Quarter: 2025Q2

REPORT INFORMATION
  Report Type: Spontaneous
  Country: JP (occurrence: JP)
  Receive Date: 20250609
  Receipt Date: 20250624
  Transmission Date: 20250716
  Serious: Yes (Hospitalization, Other)
  Sender: JAZZ
  Company Number: JP-JAZZ PHARMACEUTICALS-2025-JP-009092

PATIENT
  Age: 73 Year
  Sex: Male

DRUGS (2)
  1. VYXEOS [Suspect]
     Active Substance: CYTARABINE\DAUNORUBICIN
     Indication: Acute myeloid leukaemia
     Route: 042
     Dates: start: 20241108, end: 2024
  2. VYXEOS [Suspect]
     Active Substance: CYTARABINE\DAUNORUBICIN
     Route: 042
     Dates: start: 2024, end: 20241219

REACTIONS (3)
  - Acute myeloid leukaemia recurrent [Not Recovered/Not Resolved]
  - Neutropenic colitis [Not Recovered/Not Resolved]
  - Bone marrow failure [Not Recovered/Not Resolved]

NARRATIVE: CASE EVENT DATE: 20250129
